FAERS Safety Report 6510645-0 (Version None)
Quarter: 2009Q4

REPORT INFORMATION
  Report Type: 
  Country: None (occurrence: None)
  Receive Date: 20091222
  Receipt Date: 20091102
  Transmission Date: 20100525
  Serious: No
  Sender: FDA-Public Use
  Company Number: US-ASTRAZENECA-2009SE19678

PATIENT
  Age: 80 Year
  Sex: Male
  Weight: 69.4 kg

DRUGS (7)
  1. CRESTOR [Suspect]
     Indication: BLOOD CHOLESTEROL ABNORMAL
     Route: 048
     Dates: end: 20090101
  2. CRESTOR [Suspect]
     Indication: CORONARY ARTERY DISEASE
     Route: 048
     Dates: end: 20090101
  3. CRESTOR [Suspect]
     Route: 048
     Dates: start: 20090101, end: 20090101
  4. CRESTOR [Suspect]
     Route: 048
     Dates: start: 20090101, end: 20090101
  5. METRONIDAZOLE [Concomitant]
     Indication: DIARRHOEA
  6. FUROSEMIDE [Concomitant]
     Indication: OEDEMA
  7. NIASPAN 1000 [Concomitant]
     Indication: HYPERLIPIDAEMIA

REACTIONS (1)
  - CHROMATURIA [None]
